FAERS Safety Report 25871554 (Version 1)
Quarter: 2025Q4

REPORT INFORMATION
  Report Type: Spontaneous
  Country: US (occurrence: US)
  Receive Date: 20251001
  Receipt Date: 20251001
  Transmission Date: 20260118
  Serious: No
  Sender: GALPHARM INTERNATIONAL
  Company Number: US-PERRIGO-24US010156

PATIENT
  Age: 2 Year
  Sex: Male
  Weight: 21.315 kg

DRUGS (3)
  1. LORATADINE [Suspect]
     Active Substance: LORATADINE
     Indication: Sneezing
     Dosage: 5 MG, QO SATURDAY AND SUNDAY
     Route: 048
     Dates: start: 202401, end: 20241027
  2. LORATADINE [Suspect]
     Active Substance: LORATADINE
     Indication: Lacrimation increased
  3. LORATADINE [Suspect]
     Active Substance: LORATADINE
     Indication: Rhinorrhoea

REACTIONS (4)
  - Diarrhoea [Not Recovered/Not Resolved]
  - Anal incontinence [Not Recovered/Not Resolved]
  - Pollakiuria [Not Recovered/Not Resolved]
  - Expired product administered [Unknown]

NARRATIVE: CASE EVENT DATE: 20240701
